FAERS Safety Report 22046374 (Version 1)
Quarter: 2023Q1

REPORT INFORMATION
  Report Type: Report from Study
  Country: US (occurrence: US)
  Receive Date: 20230228
  Receipt Date: 20230228
  Transmission Date: 20230418
  Serious: Yes (Hospitalization, Other)
  Sender: FDA-Public Use
  Company Number: US-BAUSCH-BL-2023-003211

PATIENT
  Age: 68 Year
  Sex: Male

DRUGS (1)
  1. XIFAXAN [Suspect]
     Active Substance: RIFAXIMIN
     Indication: Product used for unknown indication
     Route: 065
     Dates: start: 20221012

REACTIONS (5)
  - Loss of consciousness [Unknown]
  - Haematemesis [Unknown]
  - Liver disorder [Unknown]
  - Post procedural complication [Unknown]
  - Oesophageal variceal ligation [Unknown]

NARRATIVE: CASE EVENT DATE: 20230130
